FAERS Safety Report 24565349 (Version 3)
Quarter: 2024Q4

REPORT INFORMATION
  Report Type: Spontaneous
  Country: DE (occurrence: DE)
  Receive Date: 20241030
  Receipt Date: 20241120
  Transmission Date: 20250114
  Serious: Yes (Other)
  Sender: LEO PHARM
  Company Number: DE-LEO Pharma-374625

PATIENT
  Sex: Male

DRUGS (1)
  1. ADBRY [Suspect]
     Active Substance: TRALOKINUMAB-LDRM
     Indication: Dermatitis atopic
     Dosage: NO POSOLOGY INFORMATION REPORTED. AS PER PATIENT, ADTRALZA ADMINISTRATION FOR 8 WEEKS. UPON CONSULTA
     Route: 058
     Dates: start: 20240821

REACTIONS (1)
  - Cataract [Not Recovered/Not Resolved]
